FAERS Safety Report 24828851 (Version 1)
Quarter: 2025Q1

REPORT INFORMATION
  Report Type: Spontaneous
  Country: EG (occurrence: EG)
  Receive Date: 20250110
  Receipt Date: 20250110
  Transmission Date: 20250408
  Serious: Yes (Hospitalization, Other)
  Sender: SANDOZ
  Company Number: EG-SANDOZ-SDZ2025EG001020

PATIENT
  Sex: Male

DRUGS (1)
  1. HYRIMOZ [Suspect]
     Active Substance: ADALIMUMAB-ADAZ
     Indication: Stevens-Johnson syndrome
     Route: 065

REACTIONS (2)
  - Stevens-Johnson syndrome [Unknown]
  - Off label use [Unknown]
